FAERS Safety Report 17753757 (Version 4)
Quarter: 2020Q3

REPORT INFORMATION
  Report Type: Spontaneous
  Country: US (occurrence: US)
  Receive Date: 20200507
  Receipt Date: 20200819
  Transmission Date: 20201102
  Serious: Yes (Other)
  Sender: FDA-Public Use
  Company Number: NVSC2020US120708

PATIENT
  Age: 31 Year
  Sex: Female
  Weight: 64 kg

DRUGS (3)
  1. ADAKVEO [Suspect]
     Active Substance: CRIZANLIZUMAB-TMCA
     Dosage: 5 MG/KG, QMO
     Route: 042
     Dates: start: 20200430, end: 20200430
  2. TYLENOL [Concomitant]
     Active Substance: ACETAMINOPHEN
     Indication: PREMEDICATION
     Dosage: 1 DF, UNKNOWN
     Route: 048
     Dates: start: 20200430
  3. ADAKVEO [Suspect]
     Active Substance: CRIZANLIZUMAB-TMCA
     Indication: SICKLE CELL ANAEMIA WITH CRISIS
     Dosage: 5 MG/KG, (DAY?14)
     Route: 042
     Dates: start: 20200403, end: 20200403

REACTIONS (7)
  - Muscle spasms [Unknown]
  - Feeling abnormal [Unknown]
  - Pain [Recovered/Resolved]
  - Heart rate increased [Unknown]
  - Back pain [Unknown]
  - Hypertension [Unknown]
  - Pain [Recovering/Resolving]

NARRATIVE: CASE EVENT DATE: 20200403
